FAERS Safety Report 4818714-8 (Version None)
Quarter: 2005Q4

REPORT INFORMATION
  Report Type: 
  Country: None (occurrence: None)
  Receive Date: 20051102
  Receipt Date: 20051027
  Transmission Date: 20060501
  Serious: Yes (Hospitalization)
  Sender: FDA-Public Use
  Company Number: US-MERCK-0510USA09349

PATIENT
  Age: 85 Year
  Sex: Female

DRUGS (10)
  1. FOSAMAX [Suspect]
     Indication: OSTEOPOROSIS
     Route: 048
     Dates: start: 20010101, end: 20030101
  2. TOPROL-XL [Concomitant]
     Route: 065
  3. SYNTHROID [Concomitant]
     Route: 065
  4. PREMARIN [Concomitant]
     Route: 065
  5. PROVERA [Concomitant]
     Route: 065
  6. PREDNISONE [Concomitant]
     Route: 065
  7. ZOCOR [Concomitant]
     Route: 048
  8. ACIPHEX [Concomitant]
     Route: 065
  9. NEURONTIN [Concomitant]
     Route: 065
  10. ZOLOFT [Concomitant]
     Route: 065

REACTIONS (3)
  - FRACTURE [None]
  - HIP FRACTURE [None]
  - WRIST FRACTURE [None]
